FAERS Safety Report 6386943-0 (Version None)
Quarter: 2009Q4

REPORT INFORMATION
  Report Type: 
  Country: None (occurrence: None)
  Receive Date: 20091002
  Receipt Date: 20090922
  Transmission Date: 20100525
  Serious: Yes (Other)
  Sender: FDA-Public Use
  Company Number: CA-JNJFOC-20090906793

PATIENT
  Age: 62 Year
  Sex: Male
  Weight: 90.72 kg

DRUGS (3)
  1. TYLENOL MUSCLE ACHE AND BODY PAIN [Suspect]
     Route: 048
  2. TYLENOL MUSCLE ACHE AND BODY PAIN [Suspect]
     Indication: HEADACHE
     Dosage: TWICE
     Route: 048
  3. ANTI INFLAMMATORY [Concomitant]

REACTIONS (2)
  - HYPOAESTHESIA [None]
  - NERVOUS SYSTEM DISORDER [None]
